FAERS Safety Report 7274067-X (Version None)
Quarter: 2011Q1

REPORT INFORMATION
  Report Type: 
  Country: None (occurrence: None)
  Receive Date: 20110204
  Receipt Date: 20110127
  Transmission Date: 20110831
  Serious: Yes (Other)
  Sender: FDA-Public Use
  Company Number: GR-AMGEN-GRCSP2011005618

PATIENT
  Age: 62 Year
  Sex: Male

DRUGS (6)
  1. CARVEDILOL [Concomitant]
     Dosage: UNK
  2. PLAVIX [Concomitant]
     Dosage: UNK
  3. CRESTOR [Concomitant]
     Dosage: UNK
  4. COAPROVEL [Concomitant]
     Dosage: UNK
  5. ENBREL [Suspect]
     Indication: RHEUMATOID ARTHRITIS
     Dosage: 50 MG, WEEKLY
     Route: 058
     Dates: start: 20070101, end: 20100901
  6. ADALAT [Concomitant]
     Dosage: UNK

REACTIONS (2)
  - CEREBRAL ISCHAEMIA [None]
  - MUSCULAR WEAKNESS [None]
